FAERS Safety Report 8373557-6 (Version None)
Quarter: 2012Q2

REPORT INFORMATION
  Report Type: 
  Country: None (occurrence: None)
  Receive Date: 20120517
  Receipt Date: 20120424
  Transmission Date: 20120825
  Serious: Yes (Hospitalization)
  Sender: FDA-Public Use
  Company Number: AG-2012-0190

PATIENT
  Age: 64 Year
  Sex: Male
  Weight: 105.2 kg

DRUGS (4)
  1. MAXIDE (TRIAMTERENE, HYDROCHLOROTHIAZIDE) [Concomitant]
  2. CHLORAMBUCIL (CHLORAMBUCIL) [Suspect]
     Indication: CHRONIC LYMPHOCYTIC LEUKAEMIA
     Dosage: 22MG PER DAY (22 MILLIGRAM, 1 IN 1 DAYS), ORAL
     Route: 048
     Dates: start: 20120330
  3. INVESTIGATIONAL DRUG(OTHERS) [Suspect]
     Indication: CHRONIC LYMPHOCYTIC LEUKAEMIA
     Dosage: 150MG TWICE PER DAY (150 MILLIGRAM,2 IN 1 DAYS), ORAL
     Route: 048
     Dates: start: 20120330
  4. ENALAPRIL MALEATE [Concomitant]

REACTIONS (1)
  - HYPERKALAEMIA [None]
